FAERS Safety Report 14179546 (Version 2)
Quarter: 2017Q4

REPORT INFORMATION
  Report Type: Spontaneous
  Country: US (occurrence: US)
  Receive Date: 20171110
  Receipt Date: 20171123
  Transmission Date: 20180321
  Serious: Yes (Life-Threatening, Other)
  Sender: FDA-Public Use
  Company Number: US-009507513-1711USA000883

PATIENT
  Age: 58 Year
  Sex: Female

DRUGS (1)
  1. FUROSEMIDE. [Suspect]
     Active Substance: FUROSEMIDE
     Indication: RESTRICTIVE CARDIOMYOPATHY
     Route: 048

REACTIONS (2)
  - Cardiac failure [Recovered/Resolved]
  - Drug ineffective [Unknown]
